FAERS Safety Report 8544657-2 (Version None)
Quarter: 2012Q3

REPORT INFORMATION
  Report Type: 
  Country: None (occurrence: None)
  Receive Date: 20120727
  Receipt Date: 20120715
  Transmission Date: 20120928
  Serious: Yes (Hospitalization)
  Sender: FDA-Public Use
  Company Number: IT-ROCHE-1085172

PATIENT
  Sex: Male

DRUGS (2)
  1. TORADOL [Suspect]
     Indication: GINGIVAL ABSCESS
     Dosage: STRENGTH: 20 MG/ML
     Route: 048
     Dates: start: 20120625, end: 20120625
  2. AUGMENTIN '500' [Suspect]
     Indication: GINGIVAL ABSCESS
     Route: 048
     Dates: start: 20120625, end: 20120625

REACTIONS (3)
  - PRURITUS [None]
  - CHOKING SENSATION [None]
  - ERYTHEMA [None]
